FAERS Safety Report 19265992 (Version 1)
Quarter: 2021Q2

REPORT INFORMATION
  Report Type: Spontaneous
  Country: US (occurrence: US)
  Receive Date: 20210517
  Receipt Date: 20210517
  Transmission Date: 20210717
  Serious: Yes (Hospitalization)
  Sender: FDA-Public Use
  Company Number: US-GW PHARMA-202105USGW02345

PATIENT

DRUGS (1)
  1. EPIDIOLEX [Suspect]
     Active Substance: CANNABIDIOL
     Indication: LENNOX-GASTAUT SYNDROME
     Dosage: 22 MG/KG/DAY, 500 MILLIGRAM, BID
     Route: 048
     Dates: start: 202005

REACTIONS (2)
  - Prescribed overdose [Unknown]
  - Aspiration [Not Recovered/Not Resolved]
